FAERS Safety Report 10046831 (Version 2)
Quarter: 2014Q2

REPORT INFORMATION
  Report Type: Spontaneous
  Country: US (occurrence: US)
  Receive Date: 20140331
  Receipt Date: 20140417
  Transmission Date: 20141212
  Serious: No
  Sender: FDA-Public Use
  Company Number: US-009507513-1403USA008166

PATIENT
  Age: 62 Year
  Sex: Female

DRUGS (6)
  1. PEGINTRON [Suspect]
     Indication: HEPATITIS C
     Dosage: 120 MICROGRAM, WEEKLY
     Route: 058
  2. RIBASPHERE [Suspect]
  3. LEXAPRO [Concomitant]
  4. VITAMIN D (UNSPECIFIED) [Concomitant]
  5. SOVALDI [Concomitant]
  6. AZATHIOPRINE [Concomitant]

REACTIONS (4)
  - Headache [Unknown]
  - Fatigue [Unknown]
  - Nausea [Unknown]
  - Blood pressure increased [Unknown]
